FAERS Safety Report 7819590-1 (Version None)
Quarter: 2011Q4

REPORT INFORMATION
  Report Type: 
  Country: None (occurrence: None)
  Receive Date: 20111018
  Receipt Date: 20111018
  Transmission Date: 20120403
  Serious: Yes (Hospitalization)
  Sender: FDA-Public Use
  Company Number: None

PATIENT
  Age: 77 Year
  Sex: Male
  Weight: 117 kg

DRUGS (10)
  1. FAMOTIDINE [Concomitant]
     Route: 048
  2. ENOXAPARIN [Concomitant]
     Route: 048
  3. ASPIRIN [Concomitant]
     Route: 048
  4. PIPERACILLIN AND TAZOBACTAM [Suspect]
     Indication: SEPSIS
     Dosage: 3.375 G
     Route: 042
     Dates: start: 20110728, end: 20110805
  5. PIPERACILLIN AND TAZOBACTAM [Suspect]
     Indication: CHOLECYSTITIS ACUTE
     Dosage: 3.375 G
     Route: 042
     Dates: start: 20110728, end: 20110805
  6. FOLIC ACID [Concomitant]
     Route: 048
  7. METOPROLOL TARTRATE [Concomitant]
     Route: 048
  8. MULTI-VITAMIN [Concomitant]
     Route: 048
  9. DILTIAZEM [Concomitant]
     Route: 048
  10. REGULAR INSULIN [Concomitant]

REACTIONS (6)
  - TUBULOINTERSTITIAL NEPHRITIS [None]
  - RENAL FAILURE [None]
  - CHOLECYSTITIS ACUTE [None]
  - DEHYDRATION [None]
  - ATRIAL FIBRILLATION [None]
  - MYOCARDIAL INFARCTION [None]
